FAERS Safety Report 22063906 (Version 3)
Quarter: 2023Q2

REPORT INFORMATION
  Report Type: Spontaneous
  Country: OM (occurrence: OM)
  Receive Date: 20230306
  Receipt Date: 20230405
  Transmission Date: 20230722
  Serious: Yes (Other)
  Sender: FDA-Public Use
  Company Number: OM-002147023-NVSC2023OM048427

PATIENT
  Age: 26 Year
  Sex: Male

DRUGS (3)
  1. HYRIMOZ [Suspect]
     Active Substance: ADALIMUMAB-ADAZ
     Indication: Behcet^s syndrome
     Dosage: 40 MG, Q2W (2/MONTH)
     Route: 058
     Dates: start: 20221006
  2. COLCHICINE [Concomitant]
     Active Substance: COLCHICINE
     Indication: Product used for unknown indication
     Dosage: 500 UG, BID
     Route: 065
     Dates: start: 20220316
  3. AZATHIOPRINE [Concomitant]
     Active Substance: AZATHIOPRINE
     Indication: Product used for unknown indication
     Dosage: 150 MG, QD
     Route: 065
     Dates: start: 20220821

REACTIONS (7)
  - Behcet^s syndrome [Recovered/Resolved]
  - Uveitis [Unknown]
  - Skin ulcer [Unknown]
  - Pustule [Unknown]
  - Folliculitis [Unknown]
  - Skin lesion [Unknown]
  - Product use in unapproved indication [Unknown]

NARRATIVE: CASE EVENT DATE: 20221006
